FAERS Safety Report 7090717-5 (Version None)
Quarter: 2010Q4

REPORT INFORMATION
  Report Type: 
  Country: None (occurrence: None)
  Receive Date: 20101109
  Receipt Date: 20101029
  Transmission Date: 20110411
  Serious: Yes (Life-Threatening)
  Sender: FDA-Public Use
  Company Number: ES-NOVOPROD-317418

PATIENT
  Age: 81 Year
  Sex: Male

DRUGS (2)
  1. NOVONORM [Suspect]
     Indication: DIABETES MELLITUS
     Dosage: 2 MG, TID
     Dates: start: 20100520, end: 20100803
  2. EFFICIB [Concomitant]
     Indication: DIABETES MELLITUS
     Dosage: 2000 MG METFORMIN/ 100 MG SITAGLIPTIN
     Route: 048
     Dates: start: 20100520, end: 20100803

REACTIONS (1)
  - ACUTE MYOCARDIAL INFARCTION [None]
